FAERS Safety Report 9732537 (Version 1)
Quarter: 2013Q4

REPORT INFORMATION
  Report Type: Spontaneous
  Country: US (occurrence: None)
  Receive Date: 20131204
  Receipt Date: 20131204
  Transmission Date: 20140711
  Serious: Yes (Other)
  Sender: FDA-Public Use
  Company Number: None

PATIENT
  Age: 46 Year
  Sex: Female
  Weight: 97.8 kg

DRUGS (1)
  1. RISPERIDONE [Suspect]
     Indication: DEPRESSION
     Dosage: 1 @ BEDTIME
     Dates: start: 20130502, end: 20130517

REACTIONS (4)
  - Abdominal pain upper [None]
  - Diarrhoea [None]
  - Faecal incontinence [None]
  - Abdominal discomfort [None]
